FAERS Safety Report 22912803 (Version 2)
Quarter: 2024Q1

REPORT INFORMATION
  Report Type: Spontaneous
  Country: FR (occurrence: FR)
  Receive Date: 20230906
  Receipt Date: 20240105
  Transmission Date: 20240410
  Serious: No
  Sender: FDA-Public Use
  Company Number: FR-SANDOZ-SDZ2023FR023382

PATIENT
  Age: 11 Year
  Sex: Male

DRUGS (1)
  1. OMNITROPE [Suspect]
     Active Substance: SOMATROPIN
     Indication: Product used for unknown indication
     Dosage: 1 MG, QD (INJECTABLE) (6D/7)
     Route: 065
     Dates: start: 20230829

REACTIONS (1)
  - Injection site erythema [Unknown]
